FAERS Safety Report 20854633 (Version 1)
Quarter: 2022Q2

REPORT INFORMATION
  Report Type: Spontaneous
  Country: US (occurrence: None)
  Receive Date: 20220519
  Receipt Date: 20220519
  Transmission Date: 20220721
  Serious: Yes (Death)
  Sender: FDA-Public Use
  Company Number: None

PATIENT
  Age: 80 Year
  Sex: Female
  Weight: 55.8 kg

DRUGS (1)
  1. ACALABRUTINIB [Suspect]
     Active Substance: ACALABRUTINIB
     Indication: Chronic lymphocytic leukaemia
     Dosage: FREQUENCY : TWICE A DAY;?
     Route: 048
     Dates: start: 20211012, end: 20211216

REACTIONS (5)
  - Aplasia [None]
  - Therapy interrupted [None]
  - Lung infiltration [None]
  - Pancytopenia [None]
  - Bone marrow failure [None]

NARRATIVE: CASE EVENT DATE: 20211203
